FAERS Safety Report 6428318-1 (Version None)
Quarter: 2009Q4

REPORT INFORMATION
  Report Type: 
  Country: None (occurrence: None)
  Receive Date: 20091102
  Receipt Date: 20091027
  Transmission Date: 20100525
  Serious: Yes (Hospitalization)
  Sender: FDA-Public Use
  Company Number: CHNY2009GB02193

PATIENT
  Age: 68 Year
  Sex: Female

DRUGS (4)
  1. NICOTINE [Suspect]
     Indication: SMOKING CESSATION THERAPY
     Dosage: TRANSDERMAL
     Route: 062
     Dates: start: 20090401, end: 20090406
  2. CLARITHROMYCIN [Suspect]
     Dosage: 500 MG, BID
  3. PREDNISOLONE [Suspect]
     Dosage: 30 MG
  4. NEBULIZER [Suspect]
     Indication: CHRONIC OBSTRUCTIVE PULMONARY DISEASE

REACTIONS (8)
  - DRUG INEFFECTIVE [None]
  - DRUG INTERACTION [None]
  - DYSPNOEA [None]
  - EXERCISE TOLERANCE DECREASED [None]
  - PRODUCTIVE COUGH [None]
  - RESPIRATION ABNORMAL [None]
  - SPUTUM DISCOLOURED [None]
  - TREATMENT NONCOMPLIANCE [None]
